FAERS Safety Report 6236036-8 (Version None)
Quarter: 2009Q2

REPORT INFORMATION
  Report Type: 
  Country: None (occurrence: None)
  Receive Date: 20090619
  Receipt Date: 20090610
  Transmission Date: 20091009
  Serious: Yes (Hospitalization)
  Sender: FDA-Public Use
  Company Number: US-BIOGENIDEC-2009BI001530

PATIENT
  Age: 66 Year
  Sex: Female

DRUGS (2)
  1. AVONEX [Suspect]
     Indication: MULTIPLE SCLEROSIS
     Route: 030
     Dates: start: 20031101
  2. AVONEX [Suspect]
     Route: 030
     Dates: start: 20000501, end: 20030901

REACTIONS (5)
  - ANKLE FRACTURE [None]
  - DIABETES MELLITUS [None]
  - FALL [None]
  - LOWER LIMB FRACTURE [None]
  - RENAL FAILURE [None]
